FAERS Safety Report 6326661-8 (Version None)
Quarter: 2009Q3

REPORT INFORMATION
  Report Type: 
  Country: None (occurrence: None)
  Receive Date: 20090825
  Receipt Date: 20090813
  Transmission Date: 20100115
  Serious: Yes (Other)
  Sender: FDA-Public Use
  Company Number: GB-PFIZER INC-2009254118

PATIENT
  Age: 56 Year

DRUGS (2)
  1. CHAMPIX [Suspect]
     Indication: SMOKING CESSATION THERAPY
     Dosage: 1 MG, 2X/DAY
     Route: 048
     Dates: start: 20090703, end: 20090720
  2. SUDAFED 12 HOUR [Concomitant]
     Indication: SINUS CONGESTION
     Dosage: 10 ML, EVERY 6 HOURS
     Route: 048
     Dates: start: 20090713, end: 20090720

REACTIONS (2)
  - BACK PAIN [None]
  - POLLAKIURIA [None]
